FAERS Safety Report 18606719 (Version 2)
Quarter: 2020Q4

REPORT INFORMATION
  Report Type: Report from Study
  Country: JP (occurrence: JP)
  Receive Date: 20201212
  Receipt Date: 20201224
  Transmission Date: 20210114
  Serious: No
  Sender: FDA-Public Use
  Company Number: JP-ROCHE-2727158

PATIENT
  Age: 76 Year
  Sex: Female
  Weight: 38.4 kg

DRUGS (21)
  1. EMICIZUMAB. [Suspect]
     Active Substance: EMICIZUMAB
     Indication: ACQUIRED HAEMOPHILIA
     Route: 058
     Dates: start: 20201117
  2. CINAL (JAPAN) [Concomitant]
  3. MAGNESIUM OXIDE. [Concomitant]
     Active Substance: MAGNESIUM OXIDE
  4. PREDNISOLONE. [Suspect]
     Active Substance: PREDNISOLONE
     Indication: ACQUIRED HAEMOPHILIA
     Dosage: AFTER THE BREAKFAST
     Route: 048
     Dates: start: 20201105
  5. CARERAM [Concomitant]
     Active Substance: IGURATIMOD
  6. NEUROTROPIN (JAPAN) [Concomitant]
  7. TEPRENONE [Concomitant]
     Active Substance: TEPRENONE
  8. BUPRENORPHINE. [Concomitant]
     Active Substance: BUPRENORPHINE
  9. MIYA-BM [Concomitant]
     Active Substance: CLOSTRIDIUM BUTYRICUM SPORES STRAIN M-55
  10. PICOSULFATE NA [Concomitant]
     Active Substance: SODIUM PICOSULFATE
  11. NEXIUM [Concomitant]
     Active Substance: ESOMEPRAZOLE MAGNESIUM
  12. CARBAZOCHROME SODIUM SULFONATE [Concomitant]
     Active Substance: CARBAZOCHROME SODIUM SULFONATE
  13. ALPRAZOLAM. [Concomitant]
     Active Substance: ALPRAZOLAM
  14. ACELIO [Concomitant]
     Active Substance: ACETAMINOPHEN
  15. TRAMCET [Concomitant]
     Active Substance: ACETAMINOPHEN\TRAMADOL
  16. BELSOMRA [Concomitant]
     Active Substance: SUVOREXANT
  17. SENNOSIDE [Concomitant]
     Active Substance: SENNOSIDES
  18. EMICIZUMAB. [Suspect]
     Active Substance: EMICIZUMAB
     Route: 058
     Dates: start: 20201118
  19. EMICIZUMAB. [Suspect]
     Active Substance: EMICIZUMAB
     Route: 058
     Dates: start: 20201124, end: 20201201
  20. CELECOXIB. [Concomitant]
     Active Substance: CELECOXIB
  21. AMLODIPINE [Concomitant]
     Active Substance: AMLODIPINE BESYLATE

REACTIONS (1)
  - Deep vein thrombosis [Recovered/Resolved]

NARRATIVE: CASE EVENT DATE: 20201202
